FAERS Safety Report 8541291 (Version 3)
Quarter: 2013Q3

REPORT INFORMATION
  Report Type: Spontaneous
  Country: US (occurrence: US)
  Receive Date: 20120502
  Receipt Date: 20130903
  Transmission Date: 20140515
  Serious: Yes (Death, Hospitalization)
  Sender: FDA-Public Use
  Company Number: US-GENZYME-FABR-1002479

PATIENT
  Age: 75 Year
  Sex: Female
  Weight: 105 kg

DRUGS (2)
  1. FABRAZYME [Suspect]
     Indication: FABRY^S DISEASE
     Dosage: 105 MG, Q2W
     Route: 042
     Dates: start: 20031208, end: 20120404
  2. COUMADIN [Concomitant]
     Indication: ATRIAL FIBRILLATION
     Dosage: UNK
     Route: 065

REACTIONS (2)
  - Ruptured cerebral aneurysm [Fatal]
  - Cerebrovascular accident [Fatal]
